FAERS Safety Report 5818914-4 (Version None)
Quarter: 2008Q3

REPORT INFORMATION
  Report Type: 
  Country: None (occurrence: None)
  Receive Date: 20080717
  Receipt Date: 20080703
  Transmission Date: 20090109
  Serious: Yes (Hospitalization)
  Sender: FDA-Public Use
  Company Number: DSA_32107_2008

PATIENT
  Age: 85 Year
  Sex: Male

DRUGS (1)
  1. TILDIEM (TILDIEM - DILTIAZEM HYDROCHLORIDE) 60 MG (NOT SPECIFIED) [Suspect]
     Indication: ANGINA PECTORIS
     Dosage: (60 MG QD ORAL)
     Route: 048
     Dates: start: 19880101, end: 20080428

REACTIONS (5)
  - ATRIAL FIBRILLATION [None]
  - ATRIOVENTRICULAR BLOCK COMPLETE [None]
  - BRADYCARDIA [None]
  - FALL [None]
  - LOSS OF CONSCIOUSNESS [None]
